FAERS Safety Report 11535282 (Version 1)
Quarter: 2015Q3

REPORT INFORMATION
  Report Type: Spontaneous
  Country: US (occurrence: US)
  Receive Date: 20150922
  Receipt Date: 20150922
  Transmission Date: 20151125
  Serious: No
  Sender: FDA-Public Use
  Company Number: US-TEVA-522201USA

PATIENT
  Age: 69 Year
  Sex: Female
  Weight: 81.72 kg

DRUGS (11)
  1. CLONAZEPAM. [Suspect]
     Active Substance: CLONAZEPAM
     Indication: MUSCLE SPASMS
     Dosage: .5 MILLIGRAM DAILY;
     Route: 065
     Dates: start: 20141027
  2. CRESTOR [Suspect]
     Active Substance: ROSUVASTATIN CALCIUM
     Dosage: 10 MILLIGRAM DAILY;
  3. ACEBUTOLOL [Suspect]
     Active Substance: ACEBUTOLOL
     Indication: BLOOD PRESSURE ABNORMAL
     Dosage: 600 MILLIGRAM DAILY;
     Route: 065
  4. AMITRIPTYLINE [Suspect]
     Active Substance: AMITRIPTYLINE
     Dosage: 10 MILLIGRAM DAILY;
  5. TRIAMTERENE AND HYDROCHLOROTHIAZIDE [Concomitant]
     Active Substance: HYDROCHLOROTHIAZIDE\TRIAMTERENE
     Dosage: 37.5/25 1 TABLET ONCE A DAY
  6. MULTIVITAMINS [Concomitant]
     Active Substance: VITAMINS
  7. EVISTA [Suspect]
     Active Substance: RALOXIFENE HYDROCHLORIDE
     Dosage: 60 MILLIGRAM DAILY;
  8. MYRBETRIQ [Concomitant]
     Active Substance: MIRABEGRON
     Dosage: 25 MILLIGRAM DAILY;
  9. THYROXINE [Suspect]
     Active Substance: LEVOTHYROXINE
     Indication: THYROID DISORDER
     Dosage: 50 MICROGRAM DAILY;
  10. LYRICA [Suspect]
     Active Substance: PREGABALIN
     Indication: PAIN
     Dosage: 150 MILLIGRAM DAILY;
     Route: 065
     Dates: start: 20141027
  11. MAGNESIUM FIZZ PLUS [Concomitant]
     Dosage: 1 SCOOP TWICE

REACTIONS (4)
  - Coordination abnormal [Recovering/Resolving]
  - Pain in extremity [Recovering/Resolving]
  - Gait disturbance [Recovering/Resolving]
  - Musculoskeletal pain [Recovering/Resolving]

NARRATIVE: CASE EVENT DATE: 20141027
